FAERS Safety Report 14592704 (Version 1)
Quarter: 2018Q1

REPORT INFORMATION
  Report Type: Spontaneous
  Country: CH (occurrence: CH)
  Receive Date: 20180302
  Receipt Date: 20180302
  Transmission Date: 20180509
  Serious: Yes (Other)
  Sender: FDA-Public Use
  Company Number: CH-009507513-1802CHE013558

PATIENT
  Age: 44 Year
  Sex: Female
  Weight: 56 kg

DRUGS (21)
  1. HOLOXAN [Interacting]
     Active Substance: IFOSFAMIDE
     Indication: CHEMOTHERAPY
     Dosage: 3400 MG; SEE COURSE
     Route: 042
     Dates: start: 20171212, end: 20180205
  2. KYTRIL [Concomitant]
     Active Substance: GRANISETRON HYDROCHLORIDE
     Dosage: GRANISETRON WAS ADMINISTERED AS ANTI-EMETIC THERAPY IN EACH CYCLE.
     Dates: start: 20180201, end: 20180205
  3. ZOLPIDEM [Concomitant]
     Active Substance: ZOLPIDEM\ZOLPIDEM TARTRATE
     Dosage: 10 MG, QD
  4. CALCIUM D3 SANDOZ [Concomitant]
     Active Substance: CALCIUM\CHOLECALCIFEROL
     Dosage: 500 MG, QD
  5. KEPPRA [Concomitant]
     Active Substance: LEVETIRACETAM
     Dosage: 15 ML, BID
  6. SIRDALUD [Concomitant]
     Active Substance: TIZANIDINE
     Dosage: 2 MG, BID
  7. FRAGMIN [Concomitant]
     Active Substance: DALTEPARIN SODIUM
     Dosage: 5000 IU, QD
  8. DOXORUBICIN [Concomitant]
     Active Substance: DOXORUBICIN
     Indication: CHEMOTHERAPY
     Dosage: 51 MG, PALLIATIVE CHEMOTHERAPY WITH DOXORUBICIN AND IFOSFAMIDE (HOLOXAN) 1. CYCLE 12DEC2017, 2. 04/0
     Route: 041
     Dates: start: 20171212, end: 20180203
  9. UROMITEXAN [Concomitant]
     Active Substance: MESNA
     Dosage: 3400 MG
     Dates: start: 20171212, end: 20180206
  10. EMEND [Suspect]
     Active Substance: APREPITANT
     Dosage: 125 MG, UNK
     Dates: start: 20171212, end: 20180203
  11. FOLIC ACID. [Concomitant]
     Active Substance: FOLIC ACID
     Dosage: 5 MG, QD
  12. KCL HAUSMANN [Concomitant]
     Dosage: 20 MMOL, TID
  13. CHAMOMILE [Concomitant]
     Active Substance: CHAMOMILE
     Dosage: HOMEOPATHIC SOLUTION: KAMILLOSAN (LIQUID) STELLER D 6 3X/DAY MOUTH WASH
     Route: 048
  14. PANTOZOL [Concomitant]
     Active Substance: PANTOPRAZOLE SODIUM
     Dosage: 20 MG, QD
  15. TRITTICO [Concomitant]
     Active Substance: TRAZODONE HYDROCHLORIDE
     Dosage: 75 MG, QD
  16. VITAMIN D3 STREULI [Concomitant]
     Active Substance: CHOLECALCIFEROL
     Dosage: 1600 IU, QD
  17. MST CONTINUS [Concomitant]
     Active Substance: MORPHINE SULFATE
  18. PREGABALIN. [Concomitant]
     Active Substance: PREGABALIN
     Dosage: 200 MG, BID
  19. FORTECORTIN (DEXAMETHASONE) [Concomitant]
     Active Substance: DEXAMETHASONE
     Dosage: 8 MG, QD
  20. AMPHO MORONAL [Concomitant]
     Active Substance: AMPHOTERICIN B
     Dosage: 10 MG, QID
     Route: 002
  21. PYRALVEX [Concomitant]
     Active Substance: RHUBARB\SALICYLIC ACID
     Dosage: 1 ML, QID
     Route: 002

REACTIONS (2)
  - Drug interaction [Recovered/Resolved]
  - Toxic encephalopathy [Recovered/Resolved]

NARRATIVE: CASE EVENT DATE: 20180201
